FAERS Safety Report 25797591 (Version 1)
Quarter: 2025Q3

REPORT INFORMATION
  Report Type: Spontaneous
  Country: US (occurrence: US)
  Receive Date: 20250912
  Receipt Date: 20250912
  Transmission Date: 20251020
  Serious: Yes (Other)
  Sender: ELI LILLY AND COMPANY
  Company Number: US-ELI_LILLY_AND_COMPANY-US202509005028

PATIENT
  Age: 69 Year
  Sex: Female

DRUGS (1)
  1. KISUNLA [Suspect]
     Active Substance: DONANEMAB-AZBT
     Indication: Product used for unknown indication
     Route: 065
     Dates: start: 20250807

REACTIONS (3)
  - Subdural haematoma [Not Recovered/Not Resolved]
  - Amyloid related imaging abnormalities [Not Recovered/Not Resolved]
  - Fall [Not Recovered/Not Resolved]
